FAERS Safety Report 11436945 (Version 1)
Quarter: 2015Q3

REPORT INFORMATION
  Report Type: Spontaneous
  Country: SG (occurrence: SG)
  Receive Date: 20150831
  Receipt Date: 20150831
  Transmission Date: 20151125
  Serious: Yes (Hospitalization)
  Sender: FDA-Public Use
  Company Number: SG-BAUSCH-SYM-2013-10918

PATIENT
  Age: 69 Year
  Sex: Male

DRUGS (27)
  1. METOCLOPRAMIDE. [Concomitant]
     Active Substance: METOCLOPRAMIDE
     Indication: PRODUCT USED FOR UNKNOWN INDICATION
     Dates: start: 20130824, end: 20130826
  2. ASPIRIN. [Concomitant]
     Active Substance: ASPIRIN
     Indication: PRODUCT USED FOR UNKNOWN INDICATION
     Dates: start: 19960201
  3. ACETYLCYSTEINE. [Concomitant]
     Active Substance: ACETYLCYSTEINE
     Indication: PRODUCT USED FOR UNKNOWN INDICATION
     Dates: start: 20130710
  4. 5-FU [Suspect]
     Active Substance: FLUOROURACIL
     Dosage: EVERY OTHER WEEK
     Route: 040
     Dates: start: 20130905, end: 20130905
  5. IRINOTECAN [Suspect]
     Active Substance: IRINOTECAN
     Dosage: EVERY OTHER WEEK
     Route: 042
     Dates: start: 20130905, end: 20130905
  6. AFLIBERCEPT [Suspect]
     Active Substance: AFLIBERCEPT
     Indication: COLORECTAL CANCER METASTATIC
     Dosage: EVERY OTHER WEEK
     Route: 042
     Dates: start: 20130905, end: 20130905
  7. ATENOLOL. [Concomitant]
     Active Substance: ATENOLOL
     Indication: PRODUCT USED FOR UNKNOWN INDICATION
     Dates: start: 19960201
  8. FILGRASTIM [Concomitant]
     Active Substance: FILGRASTIM
     Indication: PRODUCT USED FOR UNKNOWN INDICATION
     Dates: start: 20130819
  9. CHARCOAL, ACTIVATED [Concomitant]
     Active Substance: ACTIVATED CHARCOAL
     Indication: PRODUCT USED FOR UNKNOWN INDICATION
     Dates: start: 20130824, end: 20130826
  10. 5-FU [Suspect]
     Active Substance: FLUOROURACIL
     Dosage: EVERY OTHER WEEK
     Route: 041
     Dates: start: 20130905, end: 20130905
  11. KETOPROFEN. [Concomitant]
     Active Substance: KETOPROFEN
     Indication: PRODUCT USED FOR UNKNOWN INDICATION
     Dates: start: 20130620
  12. HYDROCORTISONE. [Concomitant]
     Active Substance: HYDROCORTISONE
     Indication: PRODUCT USED FOR UNKNOWN INDICATION
     Dates: start: 20130607
  13. DEXAMETHASONE. [Concomitant]
     Active Substance: DEXAMETHASONE
     Indication: PRODUCT USED FOR UNKNOWN INDICATION
     Dates: start: 20130905, end: 20130905
  14. ATROPINE. [Concomitant]
     Active Substance: ATROPINE
     Indication: PRODUCT USED FOR UNKNOWN INDICATION
     Dates: start: 20130905, end: 20130905
  15. ATROPINE. [Concomitant]
     Active Substance: ATROPINE
     Dates: start: 20130606, end: 20130606
  16. LEUCOVORIN. [Suspect]
     Active Substance: LEUCOVORIN
     Dosage: EVERY OTHER WEEK
     Route: 042
     Dates: start: 20130905, end: 20130905
  17. ORAL REHYDRATION SALT [Concomitant]
     Indication: PRODUCT USED FOR UNKNOWN INDICATION
     Dates: start: 20130824, end: 20130826
  18. FLUIMUCIL [Concomitant]
     Active Substance: ACETYLCYSTEINE
     Indication: PRODUCT USED FOR UNKNOWN INDICATION
     Dates: start: 20130710
  19. ONDANSETRON [Concomitant]
     Active Substance: ONDANSETRON
     Indication: PRODUCT USED FOR UNKNOWN INDICATION
     Dates: start: 20130905, end: 20130905
  20. ONDANSETRON [Concomitant]
     Active Substance: ONDANSETRON
     Dates: start: 20130606, end: 20130606
  21. DEXAMETHASONE. [Concomitant]
     Active Substance: DEXAMETHASONE
     Dates: start: 20130606, end: 20130606
  22. 5-FU [Suspect]
     Active Substance: FLUOROURACIL
     Dosage: EVERY OTHER WEEK
     Route: 041
     Dates: start: 20130306, end: 20130306
  23. IRINOTECAN [Suspect]
     Active Substance: IRINOTECAN
     Indication: COLORECTAL CANCER METASTATIC
     Dosage: EVERY OTHER WEEK
     Route: 042
     Dates: start: 20130306, end: 20130306
  24. LEUCOVORIN. [Suspect]
     Active Substance: LEUCOVORIN
     Indication: COLORECTAL CANCER METASTATIC
     Dosage: EVERY OTHER WEEK
     Route: 042
     Dates: start: 20130306, end: 20130306
  25. FILGRASTIM [Concomitant]
     Active Substance: FILGRASTIM
     Dates: start: 20130610, end: 20130614
  26. 5-FU [Suspect]
     Active Substance: FLUOROURACIL
     Indication: COLORECTAL CANCER METASTATIC
     Dosage: EVERY OTHER WEEK
     Route: 040
     Dates: start: 20130306, end: 20130306
  27. ATROPINE SULFATE/DIPHENOXYLATE HYDROCHLORIDE [Concomitant]
     Active Substance: ATROPINE SULFATE\DIPHENOXYLATE HYDROCHLORIDE
     Indication: PRODUCT USED FOR UNKNOWN INDICATION
     Dates: start: 20130824, end: 20130826

REACTIONS (2)
  - Vomiting [Recovered/Resolved]
  - Diarrhoea [Recovered/Resolved]

NARRATIVE: CASE EVENT DATE: 20130908
